FAERS Safety Report 9783420 (Version 1)
Quarter: 2013Q4

REPORT INFORMATION
  Report Type: Spontaneous
  Country: US (occurrence: None)
  Receive Date: 20131223
  Receipt Date: 20131223
  Transmission Date: 20140711
  Serious: Yes (Hospitalization)
  Sender: FDA-Public Use
  Company Number: B0954169A

PATIENT
  Age: 17 Year
  Sex: Male

DRUGS (1)
  1. WELLBUTRIN SR [Suspect]

REACTIONS (5)
  - Grand mal convulsion [None]
  - Hypotension [None]
  - Bradycardia [None]
  - Pulseless electrical activity [None]
  - Overdose [None]
